FAERS Safety Report 20532927 (Version 5)
Quarter: 2022Q2

REPORT INFORMATION
  Report Type: Spontaneous
  Country: JP (occurrence: JP)
  Receive Date: 20220301
  Receipt Date: 20220413
  Transmission Date: 20220721
  Serious: Yes (Death, Other)
  Sender: FDA-Public Use
  Company Number: JP-MSD-2202JPN003615J

PATIENT
  Sex: Female

DRUGS (7)
  1. MOLNUPIRAVIR [Suspect]
     Active Substance: MOLNUPIRAVIR
     Indication: COVID-19 treatment
     Dosage: 800 MILLIGRAM, BID
     Route: 048
     Dates: start: 20220131, end: 20220205
  2. VONOPRAZAN FUMARATE [Suspect]
     Active Substance: VONOPRAZAN FUMARATE
     Dosage: 1 DOSAGE FORM, QD
     Route: 048
     Dates: start: 20211228, end: 20220214
  3. BIO-THREE [Suspect]
     Active Substance: HERBALS
     Dosage: 1 DOSAGE FORM, QD
     Route: 048
     Dates: start: 20211228, end: 20220214
  4. FUROSEMIDE [Suspect]
     Active Substance: FUROSEMIDE
     Dosage: 1 DOSAGE FORM, QD
     Route: 048
     Dates: start: 20211228, end: 20220214
  5. SODIUM FERROUS CITRATE [Suspect]
     Active Substance: SODIUM FERROUS CITRATE
     Dosage: 2 DOSAGE FORM, QD
     Route: 048
     Dates: start: 20211228, end: 20220214
  6. CALONAL [Suspect]
     Active Substance: ACETAMINOPHEN
     Dosage: 1 DOSAGE FORM, TID
     Route: 048
     Dates: start: 20211228, end: 20220214
  7. SPIRONOLACTONE [Suspect]
     Active Substance: SPIRONOLACTONE
     Dosage: 1 DOSAGE FORM, BID
     Route: 048
     Dates: start: 20211228, end: 20220214

REACTIONS (4)
  - Renal failure [Fatal]
  - Marasmus [Fatal]
  - Decreased appetite [Not Recovered/Not Resolved]
  - Diarrhoea [Recovering/Resolving]

NARRATIVE: CASE EVENT DATE: 20220101
